FAERS Safety Report 11021526 (Version 2)
Quarter: 2015Q2

REPORT INFORMATION
  Report Type: Spontaneous
  Country: US (occurrence: US)
  Receive Date: 20150413
  Receipt Date: 20150417
  Transmission Date: 20150821
  Serious: No
  Sender: FDA-Public Use
  Company Number: US-AMGEN-USASL2015034230

PATIENT
  Age: 69 Year
  Sex: Female

DRUGS (11)
  1. IRON                               /00023503/ [Concomitant]
     Active Substance: IRON
     Dosage: UNK
  2. ENBREL [Suspect]
     Active Substance: ETANERCEPT
     Indication: RHEUMATOID ARTHRITIS
     Dosage: 50 MG, QWK
     Route: 065
     Dates: start: 20150213, end: 20150313
  3. BUMETANIDE. [Concomitant]
     Active Substance: BUMETANIDE
     Dosage: 2 MG, UNK
  4. LEVOTHYROXINE [Concomitant]
     Active Substance: LEVOTHYROXINE
     Dosage: 88 MG, UNK
  5. FLONASE [Concomitant]
     Active Substance: FLUTICASONE PROPIONATE
     Dosage: UNK
  6. FOLIC ACID. [Concomitant]
     Active Substance: FOLIC ACID
     Dosage: 6 MG, QWK
  7. PRILOSEC [Concomitant]
     Active Substance: OMEPRAZOLE MAGNESIUM
     Dosage: UNK
  8. IPRATROPIUM BROMIDE. [Concomitant]
     Active Substance: IPRATROPIUM BROMIDE
     Dosage: UNK
  9. PREDNISONE. [Concomitant]
     Active Substance: PREDNISONE
     Dosage: 12 MG, QD
  10. METHOTREXATE [Concomitant]
     Active Substance: METHOTREXATE
     Dosage: 2.5MG, 6 ON MONDAY
  11. CALCITONIN SALMON. [Concomitant]
     Active Substance: CALCITONIN SALMON
     Dosage: UNK

REACTIONS (6)
  - Peripheral swelling [Not Recovered/Not Resolved]
  - Laceration [Recovered/Resolved]
  - Contusion [Recovered/Resolved]
  - Fall [Recovered/Resolved]
  - Skin discolouration [Recovered/Resolved]
  - Fluid retention [Unknown]

NARRATIVE: CASE EVENT DATE: 2015
